FAERS Safety Report 7106081-9 (Version None)
Quarter: 2010Q4

REPORT INFORMATION
  Report Type: 
  Country: None (occurrence: None)
  Receive Date: 20101116
  Receipt Date: 20101108
  Transmission Date: 20110411
  Serious: Yes (Other)
  Sender: FDA-Public Use
  Company Number: JP-MERCK-1010USA02869

PATIENT
  Age: 67 Year
  Sex: Female
  Weight: 45 kg

DRUGS (3)
  1. JANUVIA [Suspect]
     Indication: DIABETES MELLITUS
     Route: 048
     Dates: start: 20100205
  2. ACTOS [Suspect]
     Route: 048
     Dates: start: 20091105
  3. AMARYL [Concomitant]
     Route: 048
     Dates: start: 20090708

REACTIONS (1)
  - OEDEMA [None]
